FAERS Safety Report 4291461-X (Version None)
Quarter: 2004Q1

REPORT INFORMATION
  Report Type: 
  Country: None (occurrence: None)
  Receive Date: 20040126
  Receipt Date: 20031021
  Transmission Date: 20041129
  Serious: No
  Sender: FDA-Public Use
  Company Number: USA031050527

PATIENT
  Sex: Female

DRUGS (3)
  1. FORTEO [Suspect]
  2. CALCIUM [Concomitant]
  3. VITAMIN D [Concomitant]

REACTIONS (3)
  - BONE DISORDER [None]
  - INJECTION SITE PAIN [None]
  - NAUSEA [None]
